FAERS Safety Report 21879491 (Version 15)
Quarter: 2023Q4

REPORT INFORMATION
  Report Type: Report from Study
  Country: US (occurrence: US)
  Receive Date: 20230118
  Receipt Date: 20231124
  Transmission Date: 20240110
  Serious: Yes (Other)
  Sender: FDA-Public Use
  Company Number: US-SA-SAC20221220000771

PATIENT
  Age: 13 Year
  Sex: Female
  Weight: 40 kg

DRUGS (20)
  1. AVALGLUCOSIDASE ALFA [Suspect]
     Active Substance: AVALGLUCOSIDASE ALFA
     Indication: Glycogen storage disease type II
     Dosage: 40 MG/KG, QOW, INFUSION RATE / FLOW RATE (MG/KG/H): 1,3,5,7,9
     Route: 041
     Dates: start: 20181228, end: 20181228
  2. AVALGLUCOSIDASE ALFA [Suspect]
     Active Substance: AVALGLUCOSIDASE ALFA
     Dosage: 40 MG/KG; INFUSION RATE / FLOW RATE [MG/KG/H]: 1,3,6
     Route: 041
     Dates: start: 20221215, end: 20221215
  3. AVALGLUCOSIDASE ALFA [Suspect]
     Active Substance: AVALGLUCOSIDASE ALFA
     Dosage: 40 MG/KG;INFUSION RATE / FLOW RATE [MG/KG/H]: 3,6,8,10
     Route: 041
     Dates: start: 20221215, end: 20221215
  4. AVALGLUCOSIDASE ALFA [Suspect]
     Active Substance: AVALGLUCOSIDASE ALFA
     Dosage: 40 MG/KG;INFUSION RATE / FLOW RATE [MG/KG/H]: 1,3
     Route: 041
     Dates: start: 20221229, end: 20221229
  5. AVALGLUCOSIDASE ALFA [Suspect]
     Active Substance: AVALGLUCOSIDASE ALFA
     Dosage: 40 MG/KG;INFUSION RATE / FLOW RATE [MG/KG/H]: 3,5,6,3
     Route: 041
     Dates: start: 20221229, end: 20221229
  6. AVALGLUCOSIDASE ALFA [Suspect]
     Active Substance: AVALGLUCOSIDASE ALFA
     Dosage: 40 MG/KG; INFUSION RATE / FLOW RATE [MG/KG/H]: 1,3,6,8, 10
     Route: 041
     Dates: start: 20230110, end: 20230110
  7. AVALGLUCOSIDASE ALFA [Suspect]
     Active Substance: AVALGLUCOSIDASE ALFA
     Dosage: 40 MG/KG; INFUSION RATE / FLOW RATE [MG/KG/H]: 1
     Route: 041
     Dates: start: 20230209, end: 20230209
  8. AVALGLUCOSIDASE ALFA [Suspect]
     Active Substance: AVALGLUCOSIDASE ALFA
     Dosage: 40 MG/KG; INFUSION RATE / FLOW RATE [MG/KG/H]: 1,3,6,8,10
     Route: 041
     Dates: start: 20230309, end: 20230309
  9. AVALGLUCOSIDASE ALFA [Suspect]
     Active Substance: AVALGLUCOSIDASE ALFA
     Dosage: 40 MG, INFUSION RATE / FLOW RATE [MG/KG/H]: 1,3,6,8,10
     Route: 041
     Dates: start: 20230907, end: 20230907
  10. AVALGLUCOSIDASE ALFA [Suspect]
     Active Substance: AVALGLUCOSIDASE ALFA
     Dosage: 40 MG/KG; INFUSION RATE / FLOW RATE [MG/KG/H]: 1,3,6,8,10
     Route: 041
     Dates: start: 20231005, end: 20231005
  11. AVALGLUCOSIDASE ALFA [Suspect]
     Active Substance: AVALGLUCOSIDASE ALFA
     Dosage: 40 MG/KG; INFUSION RATE / FLOW RATE [MG/KG/H]: 1,3,6,8,10
     Route: 041
     Dates: start: 20231019, end: 20231019
  12. ALBUTEROL [Concomitant]
     Active Substance: ALBUTEROL
     Indication: Asthma
     Dosage: TOTAL DAILY DOSE:1 PUFF
     Route: 055
     Dates: start: 201212
  13. TYLENOL Q6H PRN [Concomitant]
     Dosage: Q6H; PRN
     Route: 048
     Dates: start: 20201230
  14. PEDIASURE [CARBOHYDRATES NOS;FATS NOS;MINERALS NOS;PROTEIN;VITAMINS NO [Concomitant]
     Dosage: UNK
     Route: 048
     Dates: start: 20210313
  15. CYPROHEPTADINE [Concomitant]
     Active Substance: CYPROHEPTADINE
     Dosage: UNK UNK, TID AND PRN
     Route: 048
     Dates: start: 20220117, end: 20230304
  16. ZYRTEC [Concomitant]
     Active Substance: CETIRIZINE HYDROCHLORIDE
     Indication: Prophylaxis
     Dosage: UNK
     Route: 048
     Dates: start: 20230208, end: 20230503
  17. ZYRTEC [Concomitant]
     Active Substance: CETIRIZINE HYDROCHLORIDE
     Dosage: UNK
     Route: 048
     Dates: start: 20230209
  18. ZYRTEC [Concomitant]
     Active Substance: CETIRIZINE HYDROCHLORIDE
     Dosage: UNK
     Route: 048
     Dates: start: 20230323
  19. ZOFRAN [Concomitant]
     Active Substance: ONDANSETRON HYDROCHLORIDE
     Indication: Urticaria
     Dosage: UNK
     Route: 048
     Dates: start: 20230126, end: 20230126
  20. EPINEPHRINE [Concomitant]
     Active Substance: EPINEPHRINE
     Indication: Prophylaxis
     Dosage: UNK
     Route: 030
     Dates: start: 20230110, end: 20230110

REACTIONS (1)
  - Urticaria [Recovered/Resolved]

NARRATIVE: CASE EVENT DATE: 20221229
